FAERS Safety Report 9706537 (Version 1)
Quarter: 2013Q4

REPORT INFORMATION
  Report Type: Spontaneous
  Country: US (occurrence: US)
  Receive Date: 20131125
  Receipt Date: 20131125
  Transmission Date: 20140711
  Serious: No
  Sender: FDA-Public Use
  Company Number: US-009507513-1311USA004085

PATIENT
  Age: 45 Year
  Sex: Female

DRUGS (2)
  1. PEGINTRON [Suspect]
     Indication: HEPATITIS C
     Dosage: DOSE/FREQUENCY:120 MCG/0.5 ML/ ONCE WEEK
     Route: 058
     Dates: start: 20130220, end: 201305
  2. PEGINTRON [Suspect]
     Dosage: UNK
     Route: 058
     Dates: start: 2013

REACTIONS (9)
  - Hypersomnia [Recovering/Resolving]
  - Amnesia [Recovering/Resolving]
  - Fall [Recovering/Resolving]
  - Facial bones fracture [Recovering/Resolving]
  - Balance disorder [Recovering/Resolving]
  - Feeling abnormal [Recovering/Resolving]
  - Feeling abnormal [Unknown]
  - Pharyngitis streptococcal [Unknown]
  - Malaise [Recovering/Resolving]
